FAERS Safety Report 4558120-7 (Version None)
Quarter: 2005Q1

REPORT INFORMATION
  Report Type: 
  Country: None (occurrence: None)
  Receive Date: 20050103
  Receipt Date: 20041027
  Transmission Date: 20050727
  Serious: Yes (Other)
  Sender: FDA-Public Use
  Company Number: 2004UW19839

PATIENT
  Age: 82 Year
  Sex: Female
  Weight: 78.0187 kg

DRUGS (3)
  1. CRESTOR [Suspect]
     Indication: HYPERCHOLESTEROLAEMIA
     Dosage: 10 MG PO
     Route: 048
     Dates: start: 20040901
  2. LASIX [Concomitant]
  3. BENAZEPRIL HCL [Concomitant]

REACTIONS (3)
  - ABDOMINAL PAIN [None]
  - FEELING ABNORMAL [None]
  - MUSCLE SPASMS [None]
